FAERS Safety Report 24146532 (Version 1)
Quarter: 2024Q3

REPORT INFORMATION
  Report Type: Spontaneous
  Country: US (occurrence: None)
  Receive Date: 20240726
  Receipt Date: 20240726
  Transmission Date: 20241016
  Serious: Yes (Other)
  Sender: Public
  Company Number: None

PATIENT
  Sex: Male

DRUGS (11)
  1. POMALYST [Suspect]
     Active Substance: POMALIDOMIDE
     Indication: Prostate cancer
     Dosage: FREQ: TAKE 1 CAPSULE BY MOUTH DAILY ON DAYS 1 -21 OF A 28 DAY CYCLE
     Route: 048
     Dates: start: 20221004
  2. ACYCLOVIR [Concomitant]
     Active Substance: ACYCLOVIR
  3. ASPIRIN [Concomitant]
     Active Substance: ASPIRIN
  4. ATORVASTATIN [Concomitant]
     Active Substance: ATORVASTATIN
  5. CALCITRIOL [Concomitant]
     Active Substance: CALCITRIOL
  6. ENTRESTO [Concomitant]
     Active Substance: SACUBITRIL\VALSARTAN
  7. FOLIC ACID [Concomitant]
     Active Substance: FOLIC ACID
  8. KP VITAMIN D [Concomitant]
  9. METOPROL SUC [Concomitant]
  10. MIRALAX POW [Concomitant]
  11. ONDANSETRON [Concomitant]
     Active Substance: ONDANSETRON

REACTIONS (2)
  - Prostate cancer metastatic [None]
  - Metastases to bone [None]
